FAERS Safety Report 13092555 (Version 1)
Quarter: 2017Q1

REPORT INFORMATION
  Report Type: Spontaneous
  Country: FR (occurrence: FR)
  Receive Date: 20170106
  Receipt Date: 20170106
  Transmission Date: 20170428
  Serious: Yes (Life-Threatening, Disabling)
  Sender: FDA-Public Use
  Company Number: FR-INCYTE CORPORATION-2016IN008275

PATIENT
  Age: 69 Year
  Sex: Female

DRUGS (1)
  1. JAKAVI [Suspect]
     Active Substance: RUXOLITINIB
     Indication: MYELOFIBROSIS
     Dosage: 1 DF, QD
     Route: 048
     Dates: start: 20160104, end: 20161004

REACTIONS (1)
  - Hodgkin^s disease [Not Recovered/Not Resolved]

NARRATIVE: CASE EVENT DATE: 201605
